FAERS Safety Report 9539928 (Version 1)
Quarter: 2013Q3

REPORT INFORMATION
  Report Type: Spontaneous
  Country: US (occurrence: US)
  Receive Date: 20130920
  Receipt Date: 20130920
  Transmission Date: 20140515
  Serious: No
  Sender: FDA-Public Use
  Company Number: US-PURDUE-USA-2011-0071148

PATIENT
  Sex: Male

DRUGS (2)
  1. DILAUDID TABLET [Suspect]
     Indication: PAIN
     Dosage: 2 MG, Q6H PRN
     Route: 048
     Dates: start: 201012, end: 201012
  2. KADIAN [Concomitant]

REACTIONS (1)
  - Inadequate analgesia [Unknown]
